FAERS Safety Report 11507283 (Version 1)
Quarter: 2015Q3

REPORT INFORMATION
  Report Type: Spontaneous
  Country: US (occurrence: US)
  Receive Date: 20150915
  Receipt Date: 20150915
  Transmission Date: 20151125
  Serious: No
  Sender: FDA-Public Use
  Company Number: US-BANPHARM-20153961

PATIENT
  Age: 40 Year
  Sex: Female
  Weight: 75.75 kg

DRUGS (5)
  1. ZYRTEC [Suspect]
     Active Substance: CETIRIZINE HYDROCHLORIDE
     Dosage: 1 DF, QD,
     Route: 048
     Dates: start: 20150505
  2. VALTREX [Concomitant]
     Active Substance: VALACYCLOVIR HYDROCHLORIDE
  3. UNKNOWN ANTI VIRAL MEDICATION [Concomitant]
  4. FLONASE [Concomitant]
     Active Substance: FLUTICASONE PROPIONATE
  5. LYSINE [Concomitant]
     Active Substance: LYSINE

REACTIONS (2)
  - Lip swelling [Recovered/Resolved]
  - Lip blister [Recovered/Resolved]
